FAERS Safety Report 15475328 (Version 1)
Quarter: 2018Q4

REPORT INFORMATION
  Report Type: Spontaneous
  Country: US (occurrence: US)
  Receive Date: 20181008
  Receipt Date: 20181008
  Transmission Date: 20190205
  Serious: No
  Sender: FDA-Public Use
  Company Number: US-CHILTERN-US-2018-000120

PATIENT
  Age: 61 Year
  Sex: Female

DRUGS (4)
  1. RHOPRESSA [Suspect]
     Active Substance: NETARSUDIL MESYLATE
     Indication: UVEITIC GLAUCOMA
     Dosage: UNK, QD
     Route: 047
     Dates: start: 20180831, end: 20180903
  2. COMBIGAN [Concomitant]
     Active Substance: BRIMONIDINE TARTRATE\TIMOLOL MALEATE
     Indication: UVEITIC GLAUCOMA
  3. LUMIGAN [Concomitant]
     Active Substance: BIMATOPROST
     Indication: UVEITIC GLAUCOMA
     Dosage: UNK
  4. MURO 128 [Concomitant]
     Active Substance: SODIUM CHLORIDE
     Indication: UVEITIC GLAUCOMA

REACTIONS (1)
  - Corneal oedema [Not Recovered/Not Resolved]
